FAERS Safety Report 20532678 (Version 1)
Quarter: 2022Q1

REPORT INFORMATION
  Report Type: Spontaneous
  Country: US (occurrence: US)
  Receive Date: 20220301
  Receipt Date: 20220301
  Transmission Date: 20220423
  Serious: Yes (Death)
  Sender: FDA-Public Use
  Company Number: US-GW PHARMA-202202USGW00898

PATIENT

DRUGS (2)
  1. EPIDIOLEX [Suspect]
     Active Substance: CANNABIDIOL
     Indication: Epilepsy
     Dosage: 600 MILLIGRAM, QD
     Route: 048
     Dates: start: 20210806
  2. EPIDIOLEX [Suspect]
     Active Substance: CANNABIDIOL
     Indication: Myoclonus

REACTIONS (1)
  - Death [Fatal]

NARRATIVE: CASE EVENT DATE: 20211230
